FAERS Safety Report 13823652 (Version 2)
Quarter: 2018Q3

REPORT INFORMATION
  Report Type: Spontaneous
  Country: JP (occurrence: JP)
  Receive Date: 20170802
  Receipt Date: 20180926
  Transmission Date: 20181010
  Serious: Yes (Hospitalization)
  Sender: FDA-Public Use
  Company Number: JP-ORPHAN EUROPE-2024046

PATIENT
  Age: 22 Month
  Sex: Female

DRUGS (7)
  1. CARBAGLU [Suspect]
     Active Substance: CARGLUMIC ACID
     Route: 050
     Dates: start: 20170524, end: 20170528
  2. CARBOCISTEINE [Concomitant]
     Active Substance: CARBOCYSTEINE
  3. CARBAGLU [Suspect]
     Active Substance: CARGLUMIC ACID
     Indication: METHYLMALONIC ACIDURIA
     Route: 050
     Dates: start: 20170515, end: 20170520
  4. CARBAGLU [Suspect]
     Active Substance: CARGLUMIC ACID
     Route: 050
     Dates: start: 20170530, end: 20170531
  5. LACTULOSE. [Concomitant]
     Active Substance: LACTULOSE
  6. CARBAGLU [Suspect]
     Active Substance: CARGLUMIC ACID
     Route: 050
     Dates: start: 20170723, end: 20170725
  7. L?CARNITINE [Concomitant]
     Active Substance: LEVOCARNITINE

REACTIONS (6)
  - Vomiting [Unknown]
  - Pyrexia [Unknown]
  - Cough [Unknown]
  - Urine ketone body present [Unknown]
  - No adverse event [Unknown]
  - Decreased appetite [Unknown]

NARRATIVE: CASE EVENT DATE: 20170622
